FAERS Safety Report 12683413 (Version 5)
Quarter: 2017Q1

REPORT INFORMATION
  Report Type: Spontaneous
  Country: US (occurrence: US)
  Receive Date: 20160825
  Receipt Date: 20170321
  Transmission Date: 20170428
  Serious: No
  Sender: FDA-Public Use
  Company Number: US-PFIZER INC-2016400289

PATIENT
  Age: 57 Year
  Sex: Female

DRUGS (15)
  1. SERTRALINE HCL [Suspect]
     Active Substance: SERTRALINE HYDROCHLORIDE
     Indication: WEIGHT
     Dosage: 100 MG, DAILY
     Dates: start: 1997
  2. ISOSORBIDE. [Suspect]
     Active Substance: ISOSORBIDE
     Indication: ANGINA PECTORIS
     Dosage: 30 MG, DAILY
     Dates: start: 2013
  3. FLECAINIDE [Concomitant]
     Active Substance: FLECAINIDE
     Dosage: 50 MG, 2X/DAY
     Dates: start: 20160901
  4. PREDNISONE. [Concomitant]
     Active Substance: PREDNISONE
     Dosage: 3 MG, DAILY
  5. ASPIRIN. [Concomitant]
     Active Substance: ASPIRIN
     Dosage: 325 MG, 1X/DAY
  6. BISOPROLOL /HCTZ [Concomitant]
     Dosage: 1DF (BISOPROLOL FUMARATE 5 MG/HYDROCHLOROTHIAZIDE 6.25 MG), 1X/DAY
     Dates: start: 20160901
  7. XELJANZ [Suspect]
     Active Substance: TOFACITINIB CITRATE
     Indication: RHEUMATOID ARTHRITIS
     Dosage: 5 MG, 2X/DAY
     Dates: start: 201608
  8. SERTRALINE HCL [Suspect]
     Active Substance: SERTRALINE HYDROCHLORIDE
     Indication: WEANING FAILURE
     Dosage: 50 MG, 1 EVERY OTHER DAY
  9. ISOSORBIDE. [Suspect]
     Active Substance: ISOSORBIDE
     Dosage: 30 MG, 1X/DAY
  10. PLAVIX [Concomitant]
     Active Substance: CLOPIDOGREL BISULFATE
     Dosage: 75 MG, 1X/DAY
     Dates: start: 2016
  11. PANTOPRAZOLE [Suspect]
     Active Substance: PANTOPRAZOLE SODIUM
     Indication: ABDOMINAL DISCOMFORT
     Dosage: 40 MG, DAILY
     Dates: start: 2000
  12. ASPIRIN. [Concomitant]
     Active Substance: ASPIRIN
     Dosage: 325 MG, UNK
  13. METFORMIN [Concomitant]
     Active Substance: METFORMIN HYDROCHLORIDE
     Indication: BLOOD GLUCOSE ABNORMAL
     Dosage: UNK
     Dates: start: 2016, end: 20161101
  14. PREDNISONE. [Concomitant]
     Active Substance: PREDNISONE
     Dosage: 1 MG, 3X/DAY
  15. AMBIEN [Suspect]
     Active Substance: ZOLPIDEM TARTRATE
     Indication: SLEEP DISORDER
     Dosage: 10 MG, 1X/DAY (NIGHTLY)
     Dates: start: 1996

REACTIONS (2)
  - Fatigue [Recovered/Resolved]
  - Extrasystoles [Recovered/Resolved]
